FAERS Safety Report 5276493-7 (Version None)
Quarter: 2007Q1

REPORT INFORMATION
  Report Type: 
  Country: None (occurrence: None)
  Receive Date: 20061213
  Receipt Date: 20030815
  Transmission Date: 20070707
  Serious: Yes (Hospitalization)
  Sender: FDA-Public Use
  Company Number: 2003UW10405

PATIENT
  Sex: Male

DRUGS (4)
  1. SEROQUEL [Suspect]
     Dosage: 100 MG-200 MG TID
     Dates: start: 20030701
  2. SEROQUEL [Suspect]
     Dosage: 50 MG QAM
  3. SEROQUEL [Suspect]
     Dosage: 100 MG HS
  4. ABILIFY [Concomitant]

REACTIONS (6)
  - DYSPNOEA [None]
  - EAR PAIN [None]
  - EYE PAIN [None]
  - POLLAKIURIA [None]
  - SPEECH DISORDER [None]
  - TINNITUS [None]
